FAERS Safety Report 6856364-2 (Version None)
Quarter: 2010Q3

REPORT INFORMATION
  Report Type: 
  Country: None (occurrence: None)
  Receive Date: 20100715
  Receipt Date: 20100715
  Transmission Date: 20110219
  Serious: Yes (Hospitalization)
  Sender: FDA-Public Use
  Company Number: None

PATIENT
  Sex: Male
  Weight: 71 kg

DRUGS (3)
  1. OFATUMUMB/GSK [Suspect]
     Indication: CHRONIC LYMPHOCYTIC LEUKAEMIA
     Dosage: 1000MG Q28 DAYS/IV INFUS
     Route: 042
     Dates: start: 20100622
  2. BENDAMUSTINE/ CEPHALAN [Suspect]
     Indication: CHRONIC LYMPHOCYTIC LEUKAEMIA
     Dosage: 135.8MG Q28 DAYS/IV INF
     Route: 042
     Dates: start: 20100622
  3. BENDAMUSTINE/ CEPHALAN [Suspect]
     Indication: CHRONIC LYMPHOCYTIC LEUKAEMIA
     Dosage: 135.8MG Q28 DAYS/IV INF
     Route: 042
     Dates: start: 20100623

REACTIONS (3)
  - DECREASED APPETITE [None]
  - FAILURE TO THRIVE [None]
  - FATIGUE [None]
